FAERS Safety Report 10024929 (Version 1)
Quarter: 2014Q1

REPORT INFORMATION
  Report Type: Report from Study
  Country: US (occurrence: US)
  Receive Date: 20140320
  Receipt Date: 20140320
  Transmission Date: 20141002
  Serious: Yes (Other)
  Sender: FDA-Public Use
  Company Number: US-ABBVIE-14P-163-1212052-00

PATIENT
  Age: 30 Year
  Sex: Female

DRUGS (3)
  1. HUMIRA [Suspect]
     Indication: PSORIASIS
     Dates: start: 2010, end: 201309
  2. HUMIRA [Suspect]
     Dosage: LOADING DOSE DAY 1
     Dates: start: 20140228
  3. HUMIRA [Suspect]
     Dosage: DAY 8

REACTIONS (3)
  - Endometriosis [Unknown]
  - Cholecystectomy [Not Recovered/Not Resolved]
  - Psoriasis [Unknown]
